FAERS Safety Report 20319496 (Version 1)
Quarter: 2022Q1

REPORT INFORMATION
  Report Type: Spontaneous
  Country: US (occurrence: US)
  Receive Date: 20220110
  Receipt Date: 20220110
  Transmission Date: 20220424
  Serious: No
  Sender: FDA-Public Use
  Company Number: US-ORGANON-O2201USA000441

PATIENT
  Age: 29 Year
  Sex: Female
  Weight: 54.422 kg

DRUGS (1)
  1. NEXPLANON [Suspect]
     Active Substance: ETONOGESTREL
     Indication: Contraception
     Dosage: 1 IMPLANT FOR 4 YEARS IN THE LEFT ARM
     Route: 059
     Dates: start: 20170801

REACTIONS (3)
  - Menstruation irregular [Not Recovered/Not Resolved]
  - Incorrect product administration duration [Unknown]
  - Product prescribing issue [Unknown]

NARRATIVE: CASE EVENT DATE: 20200801
